FAERS Safety Report 17531466 (Version 1)
Quarter: 2020Q1

REPORT INFORMATION
  Report Type: Spontaneous
  Country: US (occurrence: US)
  Receive Date: 20200311
  Receipt Date: 20200311
  Transmission Date: 20200409
  Serious: No
  Sender: FDA-Public Use
  Company Number: US-CUMBERLAND-2020-US-000011

PATIENT
  Age: 66 Year
  Sex: Male

DRUGS (2)
  1. KRISTALOSE [Suspect]
     Active Substance: LACTULOSE
     Dosage: 10 MG
  2. LENVIMA [Suspect]
     Active Substance: LENVATINIB
     Dosage: 10 MG DAILY
     Dates: start: 20190718

REACTIONS (2)
  - Blood glucose increased [Unknown]
  - Diarrhoea [Recovered/Resolved]
